FAERS Safety Report 21728768 (Version 1)
Quarter: 2022Q4

REPORT INFORMATION
  Report Type: Spontaneous
  Country: US (occurrence: US)
  Receive Date: 20221214
  Receipt Date: 20221214
  Transmission Date: 20230112
  Serious: No
  Sender: FDA-Public Use
  Company Number: US-Dermavant-000258

PATIENT
  Sex: Female

DRUGS (1)
  1. TAPINAROF [Suspect]
     Active Substance: TAPINAROF
     Indication: Product used for unknown indication

REACTIONS (3)
  - Skin burning sensation [Unknown]
  - Application site pain [Unknown]
  - Application site discolouration [Unknown]
